FAERS Safety Report 5094931-X (Version None)
Quarter: 2006Q3

REPORT INFORMATION
  Report Type: 
  Country: None (occurrence: None)
  Receive Date: 20060901
  Receipt Date: 20060206
  Transmission Date: 20061208
  Serious: Yes (Hospitalization, Other)
  Sender: FDA-Public Use
  Company Number: JP-BAYER-200610447GDS

PATIENT
  Age: 56 Year
  Sex: Male

DRUGS (5)
  1. BUFFERIN [Suspect]
     Indication: DRUG USE FOR UNKNOWN INDICATION
     Route: 048
  2. PANALDINE [Suspect]
     Indication: DRUG USE FOR UNKNOWN INDICATION
     Route: 048
  3. AMLODIPINE BESYLATE [Suspect]
     Indication: DRUG USE FOR UNKNOWN INDICATION
     Route: 065
  4. ATORVASTATIN CALCIUM HYDRATE [Suspect]
     Indication: DRUG USE FOR UNKNOWN INDICATION
     Route: 065
  5. BEZAFIBRATE [Suspect]
     Indication: DRUG USE FOR UNKNOWN INDICATION
     Route: 065

REACTIONS (5)
  - FEELING HOT [None]
  - HENOCH-SCHONLEIN PURPURA [None]
  - LEUKOCYTOCLASTIC VASCULITIS [None]
  - OEDEMA [None]
  - PURPURA [None]
